FAERS Safety Report 5719214-3 (Version None)
Quarter: 2008Q2

REPORT INFORMATION
  Report Type: 
  Country: None (occurrence: None)
  Receive Date: 20080428
  Receipt Date: 20080415
  Transmission Date: 20081010
  Serious: Yes (Other)
  Sender: FDA-Public Use
  Company Number: GB-ELI_LILLY_AND_COMPANY-GB200804004104

PATIENT
  Age: 43 Year
  Sex: Male

DRUGS (4)
  1. ZYPREXA [Suspect]
     Indication: SCHIZOPHRENIA
     Dosage: 25 MG, UNK
     Dates: start: 20061001
  2. CHOLESTEROL- AND TRIGLYCERIDE REDUCERS [Concomitant]
  3. BETA BLOCKING AGENTS [Concomitant]
  4. ASPIRIN [Concomitant]
     Dosage: UNK, AS NEEDED

REACTIONS (2)
  - MYOCARDIAL INFARCTION [None]
  - OVERDOSE [None]
